FAERS Safety Report 23150551 (Version 1)
Quarter: 2023Q4

REPORT INFORMATION
  Report Type: Spontaneous
  Country: US (occurrence: None)
  Receive Date: 20231105
  Receipt Date: 20231105
  Transmission Date: 20240110
  Serious: No
  Sender: FDA-Public Use
  Company Number: None

PATIENT
  Age: 65 Year
  Sex: Male
  Weight: 84.6 kg

DRUGS (12)
  1. JULUCA [Suspect]
     Active Substance: DOLUTEGRAVIR SODIUM\RILPIVIRINE HYDROCHLORIDE
     Indication: HIV infection
     Dosage: OTHER QUANTITY : 1 TABLET(S);?FREQUENCY : DAILY;?
     Route: 048
     Dates: start: 20231031, end: 20231104
  2. Biktarvy 50-200-25 MG 1 tablet Orally once a day [Concomitant]
  3. Creon 36000-114000 UNIT 2 capsules Orally three times a day with meals [Concomitant]
  4. Advair HFA daily [Concomitant]
  5. Xhance BID PRN [Concomitant]
  6. Famotidine 20 MG BID [Concomitant]
  7. Lasix 40 mg Q daily [Concomitant]
  8. pregabalin 15mg capsule TID [Concomitant]
  9. xanax .5 mg BID [Concomitant]
  10. singulair 10  mg Q daily [Concomitant]
  11. TYLENOL [Concomitant]
     Active Substance: ACETAMINOPHEN
  12. VITAMIN E [Concomitant]
     Active Substance: .ALPHA.-TOCOPHEROL

REACTIONS (6)
  - Pruritus [None]
  - Pruritus [None]
  - Arthralgia [None]
  - Arthralgia [None]
  - Musculoskeletal stiffness [None]
  - Diarrhoea [None]

NARRATIVE: CASE EVENT DATE: 20231102
